FAERS Safety Report 10732924 (Version 1)
Quarter: 2015Q1

REPORT INFORMATION
  Report Type: Spontaneous
  Country: US (occurrence: None)
  Receive Date: 20150120
  Receipt Date: 20150120
  Transmission Date: 20150721
  Serious: Yes (Other)
  Sender: FDA-Public Use
  Company Number: KAD201501-000032

PATIENT
  Age: 28 Year
  Sex: Female

DRUGS (4)
  1. SOVALDI [Suspect]
     Active Substance: SOFOSBUVIR
  2. PRE-NATAL VITAMINS [Concomitant]
  3. RIBASPHERE RIBAPAK [Suspect]
     Active Substance: RIBAVIRIN
     Route: 048
     Dates: end: 201408
  4. CLONAZEPAM. [Concomitant]
     Active Substance: CLONAZEPAM

REACTIONS (3)
  - Abortion spontaneous [None]
  - Tobacco user [None]
  - Exposure during pregnancy [None]

NARRATIVE: CASE EVENT DATE: 2014
